FAERS Safety Report 6252000-7 (Version None)
Quarter: 2009Q2

REPORT INFORMATION
  Report Type: 
  Country: None (occurrence: None)
  Receive Date: 20090630
  Receipt Date: 20040906
  Transmission Date: 20091009
  Serious: Yes (Death)
  Sender: FDA-Public Use
  Company Number: US-ROCHE-638380

PATIENT
  Sex: Male

DRUGS (6)
  1. ENFUVIRTIDE [Suspect]
     Route: 065
     Dates: start: 20030912, end: 20040906
  2. NORVIR [Concomitant]
     Dates: start: 20030101, end: 20040906
  3. REYATAZ [Concomitant]
     Dates: start: 20030912, end: 20040906
  4. VIREAD [Concomitant]
     Dates: start: 20030101, end: 20040906
  5. CEFTIN [Concomitant]
     Dates: start: 20031020, end: 20031030
  6. ZITHROMAX [Concomitant]
     Dates: start: 20031020, end: 20031027

REACTIONS (1)
  - DEATH [None]
